FAERS Safety Report 6593945-8 (Version None)
Quarter: 2010Q1

REPORT INFORMATION
  Report Type: 
  Country: None (occurrence: None)
  Receive Date: 20100222
  Receipt Date: 20100217
  Transmission Date: 20100710
  Serious: Yes (Death, Hospitalization)
  Sender: FDA-Public Use
  Company Number: US-JNJFOC-20100207700

PATIENT
  Sex: Male

DRUGS (1)
  1. FENTANYL CITRATE [Suspect]
     Indication: CANCER PAIN
     Route: 062

REACTIONS (2)
  - HYPERSOMNIA [None]
  - LUNG NEOPLASM MALIGNANT [None]
